FAERS Safety Report 5884638-0 (Version None)
Quarter: 2008Q3

REPORT INFORMATION
  Report Type: 
  Country: None (occurrence: None)
  Receive Date: 20080911
  Receipt Date: 20080828
  Transmission Date: 20090109
  Serious: Yes (Other)
  Sender: FDA-Public Use
  Company Number: 1000000878

PATIENT
  Sex: Male

DRUGS (2)
  1. CITALOPRAM HYDROBROMIDE [Suspect]
     Dosage: 20 MG (20 MG, 1 IN 1 D), TRANSPLACENTAL; 10 MG (10 MG, 1 IN 1 D), TRANSPLACENTAL
     Route: 064
     Dates: start: 20070929, end: 20071218
  2. CITALOPRAM HYDROBROMIDE [Suspect]
     Dosage: 20 MG (20 MG, 1 IN 1 D), TRANSPLACENTAL; 10 MG (10 MG, 1 IN 1 D), TRANSPLACENTAL
     Route: 064
     Dates: start: 20071219, end: 20080116

REACTIONS (4)
  - APGAR SCORE LOW [None]
  - CAESAREAN SECTION [None]
  - FOETAL DISTRESS SYNDROME [None]
  - MATERNAL DRUGS AFFECTING FOETUS [None]
